FAERS Safety Report 5603843-1 (Version None)
Quarter: 2008Q1

REPORT INFORMATION
  Report Type: 
  Country: None (occurrence: None)
  Receive Date: 20080122
  Receipt Date: 20080104
  Transmission Date: 20080703
  Serious: Yes (Other)
  Sender: FDA-Public Use
  Company Number: ALK_00513_2008

PATIENT
  Sex: Male
  Weight: 63.5036 kg

DRUGS (13)
  1. VIVITROL [Suspect]
     Indication: ALCOHOLISM
     Dosage: 380 MG 1X MONTH INTRAMUSCULAR
     Dates: start: 20071001
  2. ULTRAM [Concomitant]
  3. PROZAC [Concomitant]
  4. SEROQUEL [Concomitant]
  5. RISPERDAL [Concomitant]
  6. GEODON [Concomitant]
  7. BUSPAR [Concomitant]
  8. ATIVAN [Concomitant]
  9. DICLOFENAC [Concomitant]
  10. PRILOSEC [Concomitant]
  11. SPIRIVA [Concomitant]
  12. PREVACID [Concomitant]
  13. CYMBALTA [Concomitant]

REACTIONS (10)
  - ARTHRALGIA [None]
  - CHRONIC OBSTRUCTIVE PULMONARY DISEASE [None]
  - CONDITION AGGRAVATED [None]
  - DIARRHOEA [None]
  - DRUG INEFFECTIVE [None]
  - DRUG INTERACTION [None]
  - DYSPNOEA [None]
  - FALL [None]
  - HIP FRACTURE [None]
  - REFUSAL OF TREATMENT BY PATIENT [None]
